FAERS Safety Report 20345298 (Version 1)
Quarter: 2022Q1

REPORT INFORMATION
  Report Type: Spontaneous
  Country: JP (occurrence: JP)
  Receive Date: 20220118
  Receipt Date: 20220118
  Transmission Date: 20220423
  Serious: Yes (Other)
  Sender: FDA-Public Use
  Company Number: JP-HQ SPECIALTY-JP-2022INT000010

PATIENT

DRUGS (3)
  1. CISPLATIN [Suspect]
     Active Substance: CISPLATIN
     Indication: Gastric cancer stage IV
     Dosage: 60 MG/M2 (DAY 7 OF EACH CYCLE FOR 7 CYCLES)
     Route: 042
  2. CISPLATIN [Suspect]
     Active Substance: CISPLATIN
     Dosage: UNK
  3. TS-1 [Concomitant]
     Active Substance: GIMERACIL\OTERACIL\TEGAFUR
     Indication: Gastric cancer stage IV
     Dosage: 40 MG, BID (1ST 3 WEEKS IN 5-WEEK CYCLE)
     Route: 048

REACTIONS (2)
  - Decreased appetite [Unknown]
  - Weight decreased [Unknown]
